FAERS Safety Report 18108134 (Version 1)
Quarter: 2020Q3

REPORT INFORMATION
  Report Type: Spontaneous
  Country: US (occurrence: US)
  Receive Date: 20200804
  Receipt Date: 20200804
  Transmission Date: 20201103
  Serious: Yes (Life-Threatening, Hospitalization)
  Sender: FDA-Public Use
  Company Number: None

PATIENT
  Age: 56 Year
  Sex: Male

DRUGS (1)
  1. ERBITUX [Suspect]
     Active Substance: CETUXIMAB

REACTIONS (4)
  - Pruritus [None]
  - Heart rate abnormal [None]
  - Unresponsive to stimuli [None]
  - Respiration abnormal [None]

NARRATIVE: CASE EVENT DATE: 20200720
